FAERS Safety Report 24348855 (Version 1)
Quarter: 2024Q3

REPORT INFORMATION
  Report Type: Spontaneous
  Country: US (occurrence: US)
  Receive Date: 20240923
  Receipt Date: 20240923
  Transmission Date: 20241017
  Serious: No
  Sender: STRIDES
  Company Number: None

PATIENT

DRUGS (4)
  1. GABAPENTIN [Suspect]
     Active Substance: GABAPENTIN
     Indication: Complex regional pain syndrome
     Dosage: 300 MILLIGRAM, EVERY 8 HOURS (3 TIMES A DAY)
     Route: 065
  2. GABAPENTIN [Suspect]
     Active Substance: GABAPENTIN
     Indication: Ilioinguinal neuralgia
  3. HYDROCODONE [Concomitant]
     Active Substance: HYDROCODONE
     Indication: Complex regional pain syndrome
     Dosage: 10 MILLIGRAM, PRN (UPTO 3 TIMES A DAY AS NEEDED)
     Route: 065
  4. HYDROCODONE [Concomitant]
     Active Substance: HYDROCODONE
     Indication: Ilioinguinal neuralgia

REACTIONS (1)
  - Somnolence [Unknown]
